FAERS Safety Report 17353212 (Version 1)
Quarter: 2020Q1

REPORT INFORMATION
  Report Type: Spontaneous
  Country: CL (occurrence: CL)
  Receive Date: 20200131
  Receipt Date: 20200131
  Transmission Date: 20200409
  Serious: Yes (Hospitalization)
  Sender: FDA-Public Use
  Company Number: CL-TEVA-2020-CL-1175100

PATIENT
  Age: 70 Year
  Sex: Female

DRUGS (4)
  1. CARBOPLATIN. [Suspect]
     Active Substance: CARBOPLATIN
     Indication: ENDOMETRIAL ADENOCARCINOMA
     Dosage: SIX CYCLES
     Route: 065
     Dates: end: 201602
  2. PACLITAXEL. [Suspect]
     Active Substance: PACLITAXEL
     Indication: METASTASES TO LUNG
     Dosage: EIGHT CYCLES (FOR METASTASIS IN LUNG DIAGNOSED IN OCTOBER 2016)
     Route: 065
     Dates: start: 2016, end: 201703
  3. CARBOPLATIN. [Suspect]
     Active Substance: CARBOPLATIN
     Indication: METASTASES TO LUNG
     Dosage: EIGHT CYCLES (FOR METASTASIS IN LUNG DIAGNOSED IN OCTOBER 2016)
     Route: 065
     Dates: start: 2016, end: 201703
  4. PACLITAXEL. [Suspect]
     Active Substance: PACLITAXEL
     Indication: ENDOMETRIAL ADENOCARCINOMA
     Dosage: SIX CYCLES
     Route: 065
     Dates: end: 201602

REACTIONS (1)
  - Acute lymphocytic leukaemia [Unknown]

NARRATIVE: CASE EVENT DATE: 201812
